FAERS Safety Report 22312342 (Version 1)
Quarter: 2023Q2

REPORT INFORMATION
  Report Type: Spontaneous
  Country: US (occurrence: US)
  Receive Date: 20230512
  Receipt Date: 20230512
  Transmission Date: 20230722
  Serious: Yes (Other)
  Sender: FDA-Public Use
  Company Number: US-SA-SAC20230511000690

PATIENT
  Age: 55 Year
  Sex: Male

DRUGS (1)
  1. DUPIXENT [Suspect]
     Active Substance: DUPILUMAB
     Indication: Eosinophilic oesophagitis
     Dosage: 300 MG, QW
     Route: 058
     Dates: start: 202304

REACTIONS (6)
  - Retinal tear [Unknown]
  - Vision blurred [Recovered/Resolved]
  - Dizziness [Unknown]
  - Lethargy [Unknown]
  - Malaise [Unknown]
  - Brain fog [Unknown]

NARRATIVE: CASE EVENT DATE: 20230501
